FAERS Safety Report 9748195 (Version 3)
Quarter: 2015Q3

REPORT INFORMATION
  Report Type: Spontaneous
  Country: US (occurrence: US)
  Receive Date: 20131212
  Receipt Date: 20150706
  Transmission Date: 20151125
  Serious: Yes (Other)
  Sender: FDA-Public Use
  Company Number: US-PFIZER INC-2013352654

PATIENT
  Age: 70 Year
  Sex: Female
  Weight: 78 kg

DRUGS (3)
  1. NAPROXEN SODIUM. [Suspect]
     Active Substance: NAPROXEN SODIUM
     Indication: RHEUMATOID ARTHRITIS
     Dosage: 660 MG (220MG THREE TABLETS), DAILY
     Dates: start: 2013
  2. CELEBREX [Suspect]
     Active Substance: CELECOXIB
     Indication: RHEUMATOID ARTHRITIS
     Dosage: 200 MG, DAILY
     Dates: start: 2008, end: 2013
  3. NATURE-THROID [Concomitant]
     Active Substance: THYROID, PORCINE
     Indication: AUTOIMMUNE THYROIDITIS
     Dosage: 65 MG, DAILY
     Dates: start: 2010

REACTIONS (11)
  - Glomerular filtration rate decreased [Recovering/Resolving]
  - Arthralgia [Unknown]
  - Osteoarthritis [Unknown]
  - Intervertebral disc protrusion [Unknown]
  - Intentional product use issue [Unknown]
  - Drug effect decreased [Unknown]
  - Joint swelling [Unknown]
  - Drug effect incomplete [Unknown]
  - Pain [Unknown]
  - Pain in extremity [Unknown]
  - Movement disorder [Unknown]

NARRATIVE: CASE EVENT DATE: 2013
